FAERS Safety Report 14665673 (Version 2)
Quarter: 2018Q4

REPORT INFORMATION
  Report Type: Report from Study
  Country: FR (occurrence: FR)
  Receive Date: 20180321
  Receipt Date: 20181101
  Transmission Date: 20190204
  Serious: Yes (Death, Hospitalization, Disabling, Other)
  Sender: FDA-Public Use
  Company Number: FR-JAZZ-2018-FR-004706

PATIENT

DRUGS (1)
  1. DEFITELIO [Suspect]
     Active Substance: DEFIBROTIDE SODIUM
     Indication: PROPHYLAXIS
     Dosage: 25 MG/KG, QD
     Route: 042
     Dates: start: 20160825

REACTIONS (18)
  - Aplasia [Unknown]
  - Pain in extremity [Recovered/Resolved with Sequelae]
  - Pain [Unknown]
  - Febrile bone marrow aplasia [Recovered/Resolved]
  - Cardiac murmur [Recovered/Resolved with Sequelae]
  - Fungal infection [Unknown]
  - General physical condition abnormal [Fatal]
  - Disability [Recovered/Resolved with Sequelae]
  - Vomiting [Recovered/Resolved with Sequelae]
  - Cough [Unknown]
  - Facial paralysis [Unknown]
  - Diffuse large B-cell lymphoma stage IV [Fatal]
  - Disease progression [Fatal]
  - Abdominal mass [Unknown]
  - Oesophagitis [Unknown]
  - Gastric polyps [Unknown]
  - Diffuse large B-cell lymphoma recurrent [Unknown]
  - Stomatitis [Unknown]

NARRATIVE: CASE EVENT DATE: 201612
